FAERS Safety Report 5169489-7 (Version None)
Quarter: 2006Q4

REPORT INFORMATION
  Report Type: 
  Country: None (occurrence: None)
  Receive Date: 20061204
  Receipt Date: 20061118
  Transmission Date: 20070319
  Serious: Yes (Other)
  Sender: FDA-Public Use
  Company Number: S06-USA-04931-01

PATIENT
  Sex: Male

DRUGS (2)
  1. LEXAPRO [Suspect]
     Indication: ANXIETY
     Dates: end: 20060901
  2. LEXAPRO [Suspect]
     Indication: DEPRESSION
     Dates: end: 20060901

REACTIONS (1)
  - SPERM COUNT DECREASED [None]
